FAERS Safety Report 5932080-6 (Version None)
Quarter: 2008Q4

REPORT INFORMATION
  Report Type: 
  Country: None (occurrence: None)
  Receive Date: 20081027
  Receipt Date: 20081021
  Transmission Date: 20090506
  Serious: Yes (Hospitalization, Other)
  Sender: FDA-Public Use
  Company Number: US-MERCK-0804USA05257

PATIENT
  Age: 85 Year
  Sex: Female

DRUGS (4)
  1. FOSAMAX [Suspect]
     Indication: OSTEOPOROSIS
     Route: 048
     Dates: start: 19970301, end: 20020805
  2. FOSAMAX [Suspect]
     Route: 048
     Dates: start: 20021104, end: 20060401
  3. FOSAMAX [Suspect]
     Route: 048
     Dates: start: 20051001
  4. [THERAPY UNSPECIFIED] [Concomitant]
     Indication: RHEUMATOID ARTHRITIS
     Route: 065
     Dates: start: 20030101

REACTIONS (19)
  - ABDOMINAL DISCOMFORT [None]
  - ABSCESS JAW [None]
  - ADVERSE DRUG REACTION [None]
  - BLOOD PRESSURE INCREASED [None]
  - BONE DISORDER [None]
  - CELLULITIS [None]
  - CEREBROVASCULAR ACCIDENT [None]
  - COORDINATION ABNORMAL [None]
  - DENTAL CARIES [None]
  - DRUG HYPERSENSITIVITY [None]
  - EDENTULOUS [None]
  - FISTULA DISCHARGE [None]
  - HYPOAESTHESIA ORAL [None]
  - OSTEOMYELITIS [None]
  - OSTEONECROSIS [None]
  - RHEUMATOID ARTHRITIS [None]
  - SPINAL FRACTURE [None]
  - TOOTH ABSCESS [None]
  - URINARY TRACT INFECTION [None]
